FAERS Safety Report 17277064 (Version 1)
Quarter: 2020Q1

REPORT INFORMATION
  Report Type: Spontaneous
  Country: US (occurrence: US)
  Receive Date: 20200116
  Receipt Date: 20200116
  Transmission Date: 20200409
  Serious: Yes (Disabling, Other)
  Sender: FDA-Public Use
  Company Number: None

PATIENT
  Age: 60 Year
  Sex: Female
  Weight: 74.25 kg

DRUGS (4)
  1. PROLIA [Suspect]
     Active Substance: DENOSUMAB
     Indication: OSTEOPOROSIS
     Dosage: ?          QUANTITY:1 INJECTION(S);OTHER FREQUENCY:EVERY 6 MONTHS;?
     Route: 030
     Dates: start: 20190625, end: 20200101
  2. VITAMIN D3 [Concomitant]
     Active Substance: CHOLECALCIFEROL
  3. CALCIUM [Concomitant]
     Active Substance: CALCIUM
  4. BABY ASPIRIN [Concomitant]
     Active Substance: ASPIRIN

REACTIONS (6)
  - Fall [None]
  - Pain [None]
  - Muscle atrophy [None]
  - Immobile [None]
  - Impaired self-care [None]
  - Asthenia [None]

NARRATIVE: CASE EVENT DATE: 20190701
